FAERS Safety Report 6253599-7 (Version None)
Quarter: 2009Q2

REPORT INFORMATION
  Report Type: 
  Country: None (occurrence: None)
  Receive Date: 20090630
  Receipt Date: 20090624
  Transmission Date: 20091009
  Serious: Yes (Hospitalization)
  Sender: FDA-Public Use
  Company Number: CHPA2009US14079

PATIENT
  Age: 37 Year
  Sex: Female
  Weight: 87.5 kg

DRUGS (3)
  1. NICOTINE [Suspect]
     Indication: SMOKING CESSATION THERAPY
     Dosage: 7 MG, QD, TRANSDERMAL; 14 MG, QD, TRANSDERMAL; 14 MG, QD, TRANSDERMAL
     Route: 062
     Dates: start: 20090501, end: 20090501
  2. NICOTINE [Suspect]
     Indication: SMOKING CESSATION THERAPY
     Dosage: 7 MG, QD, TRANSDERMAL; 14 MG, QD, TRANSDERMAL; 14 MG, QD, TRANSDERMAL
     Route: 062
     Dates: start: 20090601
  3. NICOTINE [Suspect]
     Indication: SMOKING CESSATION THERAPY
     Dosage: 7 MG, QD, TRANSDERMAL; 14 MG, QD, TRANSDERMAL; 14 MG, QD, TRANSDERMAL
     Route: 062
     Dates: start: 20090601

REACTIONS (2)
  - CONVULSION [None]
  - INAPPROPRIATE SCHEDULE OF DRUG ADMINISTRATION [None]
